FAERS Safety Report 21760315 (Version 2)
Quarter: 2022Q4

REPORT INFORMATION
  Report Type: Other
  Country: FR (occurrence: FR)
  Receive Date: 20221221
  Receipt Date: 20221228
  Transmission Date: 20230113
  Serious: No
  Sender: FDA-Public Use
  Company Number: FR-Blueprint Medicines Corporation-SO-FR-2022-003407

PATIENT
  Sex: Male
  Weight: 67 kg

DRUGS (3)
  1. AVAPRITINIB [Suspect]
     Active Substance: AVAPRITINIB
     Indication: Systemic mastocytosis
     Route: 048
     Dates: start: 20220826
  2. AVAPRITINIB [Suspect]
     Active Substance: AVAPRITINIB
     Indication: Haematological neoplasm
     Route: 065
  3. AMITRIPTYLINE [Concomitant]
     Active Substance: AMITRIPTYLINE
     Indication: Product used for unknown indication
     Dosage: 40 MG/ML
     Route: 065
     Dates: start: 20220819

REACTIONS (1)
  - Epistaxis [Recovered/Resolved]
